FAERS Safety Report 23891480 (Version 2)
Quarter: 2024Q2

REPORT INFORMATION
  Report Type: Spontaneous
  Country: US (occurrence: US)
  Receive Date: 20240523
  Receipt Date: 20240528
  Transmission Date: 20240716
  Serious: Yes (Other)
  Sender: FDA-Public Use
  Company Number: US-ABBVIE-5668274

PATIENT
  Sex: Female

DRUGS (8)
  1. RESTASIS [Suspect]
     Active Substance: CYCLOSPORINE
     Indication: Dry eye
     Dosage: FORM STRENGTH; 0.05%
     Route: 047
     Dates: start: 2014
  2. CARBOXYMETHYLCELLULOSE SODIUM\GLYCERIN [Suspect]
     Active Substance: CARBOXYMETHYLCELLULOSE SODIUM\GLYCERIN
     Indication: Dry eye
     Dosage: FORM STRENGTH; CMC 5MG/ML;GLYCERIN 9MG/ML SOL
     Route: 047
     Dates: start: 2014
  3. ACYCLOVIR [Concomitant]
     Active Substance: ACYCLOVIR
     Indication: Infection
  4. REFRESH OPTIVE MEGA-3 [Suspect]
     Active Substance: CARBOXYMETHYLCELLULOSE SODIUM\GLYCERIN\POLYSORBATE 80
     Indication: Dry eye
     Dosage: FORM STRENGTH: GLYCERIN 10MG/ML;POLY 80 5MG/ML;CMC 5MG/ML
     Route: 047
     Dates: start: 2014
  5. FLAXSEED [Concomitant]
     Active Substance: FLAX SEED
     Indication: Blood cholesterol
  6. ATORVASTATIN [Concomitant]
     Active Substance: ATORVASTATIN
     Indication: Blood cholesterol
  7. CALCIUM [Concomitant]
     Active Substance: CALCIUM
     Indication: Supplementation therapy
  8. LEVOTHYROXINE [Concomitant]
     Active Substance: LEVOTHYROXINE\LEVOTHYROXINE SODIUM
     Indication: Hypothyroidism

REACTIONS (6)
  - Graft versus host disease [Recovering/Resolving]
  - Dry eye [Recovering/Resolving]
  - Visual impairment [Not Recovered/Not Resolved]
  - Photophobia [Recovering/Resolving]
  - Eye irritation [Not Recovered/Not Resolved]
  - Eye pain [Recovering/Resolving]

NARRATIVE: CASE EVENT DATE: 20140101
